FAERS Safety Report 12577831 (Version 1)
Quarter: 2016Q3

REPORT INFORMATION
  Report Type: Spontaneous
  Country: US (occurrence: None)
  Receive Date: 20160720
  Receipt Date: 20160720
  Transmission Date: 20161109
  Serious: Yes (Life-Threatening, Disabling, Other)
  Sender: FDA-Public Use
  Company Number: None

PATIENT
  Age: 50 Year
  Sex: Female

DRUGS (4)
  1. CYMBALTA [Concomitant]
     Active Substance: DULOXETINE HYDROCHLORIDE
  2. CLONAZEPAM. [Concomitant]
     Active Substance: CLONAZEPAM
  3. LIOTHYRONINE [Concomitant]
     Active Substance: LIOTHYRONINE
  4. VANCOMYCIN [Suspect]
     Active Substance: VANCOMYCIN
     Indication: CLOSTRIDIUM DIFFICILE INFECTION
     Dates: start: 20160425, end: 20160716

REACTIONS (12)
  - Depression [None]
  - Anxiety [None]
  - Anger [None]
  - Drug interaction [None]
  - Toxicity to various agents [None]
  - Tinnitus [None]
  - Ototoxicity [None]
  - Nervous system disorder [None]
  - Agitation [None]
  - Feeling abnormal [None]
  - Ear haemorrhage [None]
  - Panic attack [None]

NARRATIVE: CASE EVENT DATE: 20160715
